FAERS Safety Report 19640617 (Version 1)
Quarter: 2021Q3

REPORT INFORMATION
  Report Type: Spontaneous
  Country: GB (occurrence: GB)
  Receive Date: 20210730
  Receipt Date: 20210730
  Transmission Date: 20211014
  Serious: Yes (Other)
  Sender: FDA-Public Use
  Company Number: GB-TEVA-2021-GB-1936762

PATIENT
  Age: 54 Year
  Sex: Female
  Weight: 64 kg

DRUGS (5)
  1. CLARITHROMYCIN CITRATE [Suspect]
     Active Substance: CLARITHROMYCIN CITRATE
     Indication: EAR INFECTION
     Dosage: 500MG
     Route: 048
     Dates: start: 20210713, end: 20210715
  2. CITALOPRAM [Concomitant]
     Active Substance: CITALOPRAM HYDROBROMIDE
     Dosage: 30 MG
  3. ESTRADOT [Concomitant]
     Active Substance: ESTRADIOL
     Dosage: 25 MG
  4. FOSTAIR [Concomitant]
     Active Substance: BECLOMETHASONE\FORMOTEROL
  5. FEXOFENADINE [Concomitant]
     Active Substance: FEXOFENADINE HYDROCHLORIDE
     Dosage: 180 MG

REACTIONS (8)
  - Oral discomfort [Recovering/Resolving]
  - Tongue discomfort [Unknown]
  - Swollen tongue [Unknown]
  - Headache [Unknown]
  - Dysgeusia [Unknown]
  - Nausea [Unknown]
  - Oropharyngeal pain [Unknown]
  - Paraesthesia oral [Unknown]

NARRATIVE: CASE EVENT DATE: 20210714
